FAERS Safety Report 23537244 (Version 1)
Quarter: 2024Q1

REPORT INFORMATION
  Report Type: Report from Study
  Country: US (occurrence: US)
  Receive Date: 20240219
  Receipt Date: 20240219
  Transmission Date: 20240410
  Serious: Yes (Other)
  Sender: FDA-Public Use
  Company Number: US-ABBVIE-5641710

PATIENT
  Age: 62 Year
  Sex: Female

DRUGS (1)
  1. SKYRIZI [Suspect]
     Active Substance: RISANKIZUMAB-RZAA
     Indication: Psoriatic arthropathy
     Route: 058
     Dates: start: 20220601

REACTIONS (8)
  - Cardiomegaly [Recovered/Resolved]
  - Blood pressure increased [Recovered/Resolved]
  - Cardiac infection [Recovered/Resolved]
  - Flushing [Recovered/Resolved]
  - Cellulitis [Recovered/Resolved]
  - Illness [Recovered/Resolved]
  - Illness [Unknown]
  - Ejection fraction decreased [Recovered/Resolved]

NARRATIVE: CASE EVENT DATE: 20230607
